FAERS Safety Report 7311122-X (Version None)
Quarter: 2011Q1

REPORT INFORMATION
  Report Type: 
  Country: None (occurrence: None)
  Receive Date: 20110224
  Receipt Date: 20110214
  Transmission Date: 20110831
  Serious: Yes (Death)
  Sender: FDA-Public Use
  Company Number: ID-ROCHE-750388

PATIENT
  Age: 5 Year
  Sex: Female
  Weight: 18 kg

DRUGS (3)
  1. CEFTRIAXONE SODIUM [Suspect]
     Route: 065
     Dates: start: 20090227, end: 20090228
  2. RANITIDINE [Concomitant]
     Dates: start: 20090227, end: 20090228
  3. OSELTAMIVIR [Suspect]
     Indication: AVIAN INFLUENZA
     Route: 065
     Dates: start: 20090227, end: 20090228

REACTIONS (1)
  - ACUTE RESPIRATORY DISTRESS SYNDROME [None]
